FAERS Safety Report 10057191 (Version 1)
Quarter: 2014Q2

REPORT INFORMATION
  Report Type: Spontaneous
  Country: IN (occurrence: IN)
  Receive Date: 20140403
  Receipt Date: 20140403
  Transmission Date: 20141212
  Serious: Yes (Other)
  Sender: FDA-Public Use
  Company Number: IN-MYLANLABS-2014S1006936

PATIENT
  Age: 53 Year
  Sex: Male

DRUGS (4)
  1. DICLOFENAC [Suspect]
     Route: 065
  2. ONDANSETRON [Concomitant]
     Route: 065
  3. PARACETAMOL [Concomitant]
     Route: 065
  4. TRAMADOL [Concomitant]
     Route: 065

REACTIONS (2)
  - Dermatitis bullous [Recovering/Resolving]
  - Drug eruption [Recovering/Resolving]
